FAERS Safety Report 23781265 (Version 1)
Quarter: 2024Q2

REPORT INFORMATION
  Report Type: Report from Study
  Country: TH (occurrence: TH)
  Receive Date: 20240425
  Receipt Date: 20240425
  Transmission Date: 20240716
  Serious: Yes (Other)
  Sender: FDA-Public Use
  Company Number: TH-JNJFOC-20240473913

PATIENT
  Age: 26 Year
  Sex: Female

DRUGS (5)
  1. SIRTURO [Suspect]
     Active Substance: BEDAQUILINE FUMARATE
     Indication: Tuberculosis
     Route: 048
  2. SIRTURO [Suspect]
     Active Substance: BEDAQUILINE FUMARATE
     Dosage: 200MG THREE TIMES A WEEK FOR 24 WEEKS
     Route: 048
  3. PRETOMANID [Suspect]
     Active Substance: PRETOMANID
     Indication: Tuberculosis
     Dosage: FOR 26 WEEKS
     Route: 048
  4. LINEZOLID [Suspect]
     Active Substance: LINEZOLID
     Indication: Tuberculosis
     Dosage: FOR 26 WEEKS, AND THE DOSE MAY BE DECREASED OR STOPPED DUE TO SIDE EFFECTS AFTER 8 WEEKS OF TREATMEN
     Route: 048
  5. MOXIFLOXACIN [Suspect]
     Active Substance: MOXIFLOXACIN
     Indication: Tuberculosis
     Dosage: FOR 26 WEEKS
     Route: 065

REACTIONS (1)
  - Optic neuritis [Unknown]
